FAERS Safety Report 10057437 (Version 2)
Quarter: 2014Q2

REPORT INFORMATION
  Report Type: Spontaneous
  Country: US (occurrence: US)
  Receive Date: 20140403
  Receipt Date: 20140613
  Transmission Date: 20141212
  Serious: Yes (Death, Life-Threatening)
  Sender: FDA-Public Use
  Company Number: PHHY2014US040432

PATIENT
  Age: 54 Year
  Sex: Male

DRUGS (2)
  1. CICLOSPORIN [Suspect]
     Indication: IMMUNOSUPPRESSION
  2. DACLIZUMAB [Suspect]
     Indication: IMMUNOSUPPRESSION

REACTIONS (2)
  - Hepatitis cholestatic [Fatal]
  - Renal transplant failure [Unknown]
